FAERS Safety Report 4852852-9 (Version None)
Quarter: 2005Q4

REPORT INFORMATION
  Report Type: 
  Country: None (occurrence: None)
  Receive Date: 20051214
  Receipt Date: 20051208
  Transmission Date: 20060501
  Serious: Yes (Life-Threatening)
  Sender: FDA-Public Use
  Company Number: BE-BOEHRINGER INGELHEIM PHARMACEUTICALS, INC.-2005-BP-21128BP

PATIENT
  Sex: Male
  Weight: 58 kg

DRUGS (11)
  1. MICARDIS [Suspect]
     Indication: CARDIOVASCULAR DISORDER
     Route: 048
     Dates: start: 20020812
  2. MICARDIS [Suspect]
     Indication: CEREBROVASCULAR ACCIDENT PROPHYLAXIS
  3. RAMIPRIL [Suspect]
     Indication: CARDIOVASCULAR DISORDER
     Route: 048
     Dates: start: 20020812
  4. RAMIPRIL [Suspect]
     Indication: CEREBROVASCULAR ACCIDENT PROPHYLAXIS
  5. BRONCHODIALATOR [Concomitant]
  6. THIOLAIR [Concomitant]
  7. ZOCOR [Concomitant]
  8. CLOZAN [Concomitant]
  9. KINIDINE [Concomitant]
  10. PIROXICAM [Concomitant]
  11. PLAVIX [Concomitant]

REACTIONS (5)
  - FATIGUE [None]
  - HYPERKALAEMIA [None]
  - MALAISE [None]
  - RENAL ARTERY STENOSIS [None]
  - RENAL FAILURE [None]
